FAERS Safety Report 23366843 (Version 3)
Quarter: 2024Q4

REPORT INFORMATION
  Report Type: Spontaneous
  Country: US (occurrence: US)
  Receive Date: 20240104
  Receipt Date: 20241205
  Transmission Date: 20250114
  Serious: Yes (Other)
  Sender: PFIZER
  Company Number: US-PFIZER INC-202300457103

PATIENT
  Age: 53 Year
  Sex: Female

DRUGS (1)
  1. PREMPRO [Suspect]
     Active Substance: ESTROGENS, CONJUGATED\MEDROXYPROGESTERONE ACETATE
     Indication: Menopause
     Dosage: 1 DF, DAILY
     Dates: start: 2022

REACTIONS (12)
  - Drug dependence [Unknown]
  - Thyroid disorder [Unknown]
  - Palpitations [Unknown]
  - Dizziness [Unknown]
  - Pruritus [Unknown]
  - Mental disorder [Unknown]
  - Emotional disorder [Unknown]
  - Depression [Unknown]
  - Anxiety [Unknown]
  - Post-traumatic stress disorder [Unknown]
  - Condition aggravated [Unknown]
  - Weight increased [Unknown]
